FAERS Safety Report 9966087 (Version 1)
Quarter: 2014Q1

REPORT INFORMATION
  Report Type: Report from Study
  Country: US (occurrence: US)
  Receive Date: 20140305
  Receipt Date: 20140305
  Transmission Date: 20141002
  Serious: No
  Sender: FDA-Public Use
  Company Number: US-ABBVIE-13P-163-1127364-00

PATIENT
  Age: 31 Year
  Sex: Female
  Weight: 84.9 kg

DRUGS (4)
  1. HUMIRA [Suspect]
     Indication: COLITIS ULCERATIVE
     Dates: start: 2008
  2. VITAMINS [Concomitant]
     Indication: VITAMIN SUPPLEMENTATION
  3. BUPROPION [Concomitant]
     Indication: DEPRESSION
  4. VITAMIN D [Concomitant]
     Indication: COLITIS ULCERATIVE

REACTIONS (4)
  - Device malfunction [Not Recovered/Not Resolved]
  - Injection site haemorrhage [Recovered/Resolved]
  - Wrong technique in drug usage process [Not Recovered/Not Resolved]
  - Incorrect dose administered [Unknown]
